FAERS Safety Report 4471125-X (Version None)
Quarter: 2004Q4

REPORT INFORMATION
  Report Type: 
  Country: None (occurrence: None)
  Receive Date: 20041008
  Receipt Date: 20040927
  Transmission Date: 20050328
  Serious: Yes (Hospitalization, Other)
  Sender: FDA-Public Use
  Company Number: A-US2004-07004

PATIENT
  Age: 52 Year
  Sex: Female
  Weight: 94.3 kg

DRUGS (16)
  1. TRACLEER [Suspect]
     Indication: PULMONARY HYPERTENSION
     Dosage: 125 MG, BID, ORAL
     Route: 048
     Dates: start: 20040301, end: 20040701
  2. TOPOMAX (TOPIRAMATE) [Concomitant]
  3. SINGULAIR [Concomitant]
  4. FOLIC ACID [Concomitant]
  5. ZOLOFT [Concomitant]
  6. PROTONIX [Concomitant]
  7. PREDNISONE [Concomitant]
  8. QUESTRAN [Concomitant]
  9. LEVAQUIN (LEVOFLOXACN) [Concomitant]
  10. SOLU-CORTEF [Concomitant]
  11. NEUPOGEN [Concomitant]
  12. IMODIUM [Concomitant]
  13. DEMEROL [Concomitant]
  14. PHENERGAN [Concomitant]
  15. VITAMIN B12 [Concomitant]
  16. IMMUNE GLOBULIN INTRAVENOUS (HUMAN) [Concomitant]

REACTIONS (9)
  - ABDOMINAL PAIN [None]
  - AUTOIMMUNE HEPATITIS [None]
  - DIARRHOEA [None]
  - GASTROOESOPHAGITIS [None]
  - HEPATIC CIRRHOSIS [None]
  - HEPATIC STEATOSIS [None]
  - PYREXIA [None]
  - VARICES OESOPHAGEAL [None]
  - VASCULITIS [None]
